FAERS Safety Report 9466602 (Version 1)
Quarter: 2013Q3

REPORT INFORMATION
  Report Type: Spontaneous
  Country: GB (occurrence: GB)
  Receive Date: 20130820
  Receipt Date: 20130820
  Transmission Date: 20140515
  Serious: Yes (Other)
  Sender: FDA-Public Use
  Company Number: PHHY2013GB085725

PATIENT
  Age: 89 Year
  Sex: Female

DRUGS (7)
  1. METHOTREXATE [Suspect]
     Indication: RHEUMATOID ARTHRITIS
     Dosage: 17.5 MG, UNK
     Route: 048
  2. TRIMETHOPRIM [Interacting]
  3. PREDNISOLONE [Concomitant]
  4. ASPIRIN [Concomitant]
  5. ALENDRONIC ACID [Concomitant]
  6. CALCEOS [Concomitant]
  7. ACIDO FOLICO [Concomitant]

REACTIONS (2)
  - Pancytopenia [Recovered/Resolved]
  - Drug interaction [Unknown]
